FAERS Safety Report 7381431-7 (Version None)
Quarter: 2011Q1

REPORT INFORMATION
  Report Type: 
  Country: None (occurrence: None)
  Receive Date: 20110329
  Receipt Date: 20100909
  Transmission Date: 20110831
  Serious: Yes (Hospitalization, Other)
  Sender: FDA-Public Use
  Company Number: US-BAYER-200939714NA

PATIENT
  Sex: Female
  Weight: 81.633 kg

DRUGS (8)
  1. YASMIN [Suspect]
     Indication: CONTRACEPTION
     Dosage: UNK
     Route: 048
     Dates: start: 20060601, end: 20080101
  2. YAZ [Suspect]
  3. PROAIR HFA [Concomitant]
     Dosage: UNK
     Dates: start: 20050101
  4. LEXAPRO [Concomitant]
     Indication: POSTPARTUM DEPRESSION
     Dosage: UNK
     Dates: start: 20020101
  5. VICODIN [Concomitant]
     Dosage: UNK
     Route: 048
     Dates: start: 20080313
  6. PHENERGAN [Concomitant]
     Dosage: UNK
     Route: 042
     Dates: start: 20080313
  7. NAPROXEN [Concomitant]
  8. NSAID'S [Concomitant]
     Dosage: UNK
     Dates: start: 20000101

REACTIONS (9)
  - NAUSEA [None]
  - ABDOMINAL PAIN UPPER [None]
  - GALLBLADDER CHOLESTEROLOSIS [None]
  - VOMITING [None]
  - CHOLECYSTITIS CHRONIC [None]
  - BILIARY COLIC [None]
  - GASTROOESOPHAGEAL REFLUX DISEASE [None]
  - BILIARY DYSKINESIA [None]
  - GALLBLADDER DISORDER [None]
